FAERS Safety Report 16397025 (Version 1)
Quarter: 2019Q2

REPORT INFORMATION
  Report Type: Spontaneous
  Country: GR (occurrence: GR)
  Receive Date: 20190606
  Receipt Date: 20190606
  Transmission Date: 20190711
  Serious: Yes (Other)
  Sender: FDA-Public Use
  Company Number: GR-AMGEN-GRCSP2019085677

PATIENT
  Age: 54 Year
  Sex: Female

DRUGS (4)
  1. CORTISOL [Concomitant]
     Active Substance: HYDROCORTISONE
     Indication: RHEUMATOID ARTHRITIS
  2. METHOTREXATE. [Concomitant]
     Active Substance: METHOTREXATE
     Indication: RHEUMATOID ARTHRITIS
  3. CORTISOL [Concomitant]
     Active Substance: HYDROCORTISONE
     Indication: ARTHRALGIA
  4. ADALIMUMAB [Suspect]
     Active Substance: ADALIMUMAB
     Indication: RHEUMATOID ARTHRITIS
     Dosage: UNK
     Route: 065

REACTIONS (4)
  - Ischaemic cerebral infarction [Unknown]
  - Pneumonia legionella [Unknown]
  - Cerebral haematoma [Unknown]
  - Vasculitis [Unknown]
